FAERS Safety Report 10657276 (Version 1)
Quarter: 2014Q4

REPORT INFORMATION
  Report Type: Spontaneous
  Country: US (occurrence: None)
  Receive Date: 20141216
  Receipt Date: 20141216
  Transmission Date: 20150529
  Serious: Yes (Death)
  Sender: FDA-Public Use
  Company Number: None

PATIENT
  Age: 75 Year
  Sex: Female
  Weight: 58.3 kg

DRUGS (10)
  1. OCULAIR [Concomitant]
  2. PROCHLORPERAZINE. [Concomitant]
     Active Substance: PROCHLORPERAZINE
  3. LETROZOLE. [Concomitant]
     Active Substance: LETROZOLE
  4. LAPATINIB [Suspect]
     Active Substance: LAPATINIB
     Indication: BREAST CANCER
     Dates: start: 20140613, end: 20141114
  5. ATENOLOL. [Concomitant]
     Active Substance: ATENOLOL
  6. SIMVASTATIN. [Concomitant]
     Active Substance: SIMVASTATIN
  7. IMODIUM [Concomitant]
     Active Substance: LOPERAMIDE HYDROCHLORIDE
  8. BENICAR [Concomitant]
     Active Substance: OLMESARTAN MEDOXOMIL
  9. HERCEPTIN [Suspect]
     Active Substance: TRASTUZUMAB
     Indication: BREAST CANCER
     Dosage: 414MG EVERY 21 DAYS
     Dates: start: 20140613, end: 20141105
  10. POTASSIUM [Concomitant]
     Active Substance: POTASSIUM

REACTIONS (1)
  - Death [None]

NARRATIVE: CASE EVENT DATE: 20141115
